FAERS Safety Report 8485836-2 (Version None)
Quarter: 2012Q3

REPORT INFORMATION
  Report Type: 
  Country: None (occurrence: None)
  Receive Date: 20120703
  Receipt Date: 20120628
  Transmission Date: 20120928
  Serious: Yes (Other)
  Sender: FDA-Public Use
  Company Number: PHEH2012US012925

PATIENT
  Sex: Female

DRUGS (4)
  1. VALIUM [Concomitant]
     Dosage: UNK UKN, UNK
  2. NEORAL [Concomitant]
     Dosage: 75 MG, BID
     Dates: start: 20060101
  3. MYFORTIC [Suspect]
     Indication: LIVER TRANSPLANT
     Dosage: 360 MG, BID
     Route: 048
     Dates: start: 20050101
  4. OXYCODONE HCL [Concomitant]
     Dosage: UNK UKN, UNK

REACTIONS (2)
  - CONFUSIONAL STATE [None]
  - MEMORY IMPAIRMENT [None]
